FAERS Safety Report 5709582-0 (Version None)
Quarter: 2008Q2

REPORT INFORMATION
  Report Type: 
  Country: None (occurrence: None)
  Receive Date: 20080418
  Receipt Date: 20080410
  Transmission Date: 20081010
  Serious: Yes (Other)
  Sender: FDA-Public Use
  Company Number: BE-ROCHE-552783

PATIENT
  Sex: Male
  Weight: 63 kg

DRUGS (4)
  1. ROCEPHIN [Suspect]
     Indication: PROPHYLAXIS
     Dosage: BOLUS DOSE.
     Route: 042
     Dates: start: 20080305, end: 20080305
  2. ROCEPHIN [Suspect]
     Dosage: BOLUS DOSE.
     Route: 042
     Dates: start: 20080306, end: 20080306
  3. CARVEDILOL [Concomitant]
     Indication: HYPERTENSION
     Route: 048
  4. ZESTRIL [Concomitant]
     Indication: HYPERTENSION
     Route: 048

REACTIONS (1)
  - BRADYCARDIA [None]
